FAERS Safety Report 8633428 (Version 2)
Quarter: 2015Q4

REPORT INFORMATION
  Report Type: Report from Study
  Country: AU (occurrence: AU)
  Receive Date: 20120625
  Receipt Date: 20151112
  Transmission Date: 20160305
  Serious: Yes (Death)
  Sender: FDA-Public Use
  Company Number: AU-ROCHE-1081283

PATIENT
  Age: 72 Year
  Sex: Male

DRUGS (1)
  1. AVASTIN [Suspect]
     Active Substance: BEVACIZUMAB
     Indication: PRODUCT USED FOR UNKNOWN INDICATION
     Dosage: LAST DOSE ON  07/OCT/2011
     Route: 065
     Dates: start: 20110822, end: 20111007

REACTIONS (1)
  - Death [Fatal]

NARRATIVE: CASE EVENT DATE: 20120618
